FAERS Safety Report 9011576 (Version 1)
Quarter: 2013Q1

REPORT INFORMATION
  Report Type: Spontaneous
  Country: US (occurrence: US)
  Receive Date: 20130108
  Receipt Date: 20130108
  Transmission Date: 20140127
  Serious: Yes (Other)
  Sender: FDA-Public Use
  Company Number: US-UCBSA-074432

PATIENT
  Age: 79 Year
  Sex: Female

DRUGS (1)
  1. CIMZIA [Suspect]
     Indication: CROHN^S DISEASE
     Dosage: INITIAL DOSE OF 200MG
     Dates: start: 20121112

REACTIONS (2)
  - Colostomy [Not Recovered/Not Resolved]
  - Adverse event [Not Recovered/Not Resolved]
